FAERS Safety Report 9172081 (Version 1)
Quarter: 2013Q1

REPORT INFORMATION
  Report Type: Spontaneous
  Country: US (occurrence: US)
  Receive Date: 20130319
  Receipt Date: 20130319
  Transmission Date: 20140127
  Serious: Yes (Hospitalization)
  Sender: FDA-Public Use
  Company Number: US-US-EMD SERONO, INC.-235673K09USA

PATIENT
  Sex: Female

DRUGS (7)
  1. REBIF [Suspect]
     Indication: MULTIPLE SCLEROSIS
     Route: 058
     Dates: start: 20070119
  2. IMITREX [Concomitant]
     Indication: MIGRAINE
  3. EFFEXOR [Concomitant]
     Indication: HOT FLUSH
     Dates: start: 2008, end: 200905
  4. VITAMIN D [Concomitant]
     Indication: VITAMIN D DECREASED
     Dates: end: 2009
  5. VITAMIN D [Concomitant]
     Dates: start: 2009
  6. CALCIUM [Concomitant]
     Indication: VITAMIN SUPPLEMENTATION
  7. MEGAVITAMIN [Concomitant]
     Indication: VITAMIN SUPPLEMENTATION

REACTIONS (5)
  - Breast cancer [Recovered/Resolved]
  - Metastases to lymph nodes [Recovered/Resolved]
  - Lymphoedema [Unknown]
  - Skin lesion [Unknown]
  - Injection site mass [Unknown]
